FAERS Safety Report 8309682-5 (Version None)
Quarter: 2012Q2

REPORT INFORMATION
  Report Type: 
  Country: None (occurrence: None)
  Receive Date: 20120423
  Receipt Date: 20120411
  Transmission Date: 20120825
  Serious: Yes (Hospitalization)
  Sender: FDA-Public Use
  Company Number: 132833

PATIENT
  Age: 65 Year
  Sex: Male

DRUGS (1)
  1. LEUCOVORIN CALCIUM [Suspect]
     Indication: COLORECTAL CANCER METASTATIC

REACTIONS (7)
  - PNEUMATOSIS INTESTINALIS [None]
  - HEPATIC STEATOSIS [None]
  - PNEUMATOSIS [None]
  - INTESTINAL PERFORATION [None]
  - RENAL MASS [None]
  - HEPATIC CIRRHOSIS [None]
  - ENTEROCOLITIS [None]
